FAERS Safety Report 20585010 (Version 2)
Quarter: 2022Q1

REPORT INFORMATION
  Report Type: Other
  Country: IT (occurrence: None)
  Receive Date: 20220311
  Receipt Date: 20220317
  Transmission Date: 20220423
  Serious: No
  Sender: FDA-Public Use
  Company Number: IT-SA-2021SA277065

PATIENT
  Age: 50 Year
  Sex: Male

DRUGS (25)
  1. TOCILIZUMAB [Suspect]
     Active Substance: TOCILIZUMAB
     Indication: COVID-19
     Route: 065
  2. OLMESARTAN [Concomitant]
     Active Substance: OLMESARTAN
     Indication: Hypertension
  3. HYDROXYCHLOROQUINE [Concomitant]
     Active Substance: HYDROXYCHLOROQUINE
     Indication: COVID-19
  4. MEROPENEM [Concomitant]
     Active Substance: MEROPENEM
     Indication: COVID-19
  5. PREDNISOLONE [Concomitant]
     Active Substance: PREDNISOLONE
  6. SODIUM BICARBONATE [Concomitant]
     Active Substance: SODIUM BICARBONATE
  7. ACETAMINOPHEN [Concomitant]
     Active Substance: ACETAMINOPHEN
  8. LYSINE ACETYLSALICYLATE [Concomitant]
     Active Substance: ASPIRIN DL-LYSINE
  9. HYDROXYCHLOROQUINE [Concomitant]
     Active Substance: HYDROXYCHLOROQUINE
  10. MEROPENEM [Concomitant]
     Active Substance: MEROPENEM
  11. LINEZOLID [Concomitant]
     Active Substance: LINEZOLID
  12. MORPHINE [Concomitant]
     Active Substance: MORPHINE
     Dosage: 12 MG/D
  13. HEPARIN CALCIUM [Concomitant]
     Active Substance: HEPARIN CALCIUM
  14. HEPARIN CALCIUM [Concomitant]
     Active Substance: HEPARIN CALCIUM
  15. METHYLPREDNISOLONE [Concomitant]
     Active Substance: METHYLPREDNISOLONE
     Route: 042
  16. MIDAZOLAM [Concomitant]
     Active Substance: MIDAZOLAM
  17. HALOPERIDOL [Concomitant]
     Active Substance: HALOPERIDOL
  18. FUROSEMIDE [Concomitant]
     Active Substance: FUROSEMIDE
  19. RAMIPRIL [Concomitant]
     Active Substance: RAMIPRIL
  20. BROMAZEPAM [Concomitant]
     Active Substance: BROMAZEPAM
  21. ASPIRIN DL-LYSINE [Concomitant]
     Active Substance: ASPIRIN DL-LYSINE
  22. CHLORPHENIRAMINE MALEATE [Concomitant]
     Active Substance: CHLORPHENIRAMINE MALEATE
  23. ISOSORBIDE DINITRATE [Concomitant]
     Active Substance: ISOSORBIDE DINITRATE
  24. BISOPROLOL [Concomitant]
     Active Substance: BISOPROLOL
  25. ACETAMINOPHEN [Concomitant]
     Active Substance: ACETAMINOPHEN

REACTIONS (2)
  - Off label use [Unknown]
  - No adverse event [Unknown]
